FAERS Safety Report 9924923 (Version 9)
Quarter: 2016Q3

REPORT INFORMATION
  Report Type: Report from Study
  Country: US (occurrence: US)
  Receive Date: 20140226
  Receipt Date: 20160809
  Transmission Date: 20161109
  Serious: Yes (Hospitalization, Other)
  Sender: FDA-Public Use
  Company Number: US-SA-2014SA021569

PATIENT
  Age: 36 Year
  Sex: Female

DRUGS (2)
  1. XARELTO [Suspect]
     Active Substance: RIVAROXABAN
     Indication: ANTICOAGULANT THERAPY
     Route: 065
  2. FABRAZYME [Suspect]
     Active Substance: AGALSIDASE BETA
     Indication: FABRY^S DISEASE
     Route: 042
     Dates: start: 20070920, end: 20140423

REACTIONS (22)
  - Staphylococcal infection [Not Recovered/Not Resolved]
  - Neuralgia [Not Recovered/Not Resolved]
  - Osteoporosis [Not Recovered/Not Resolved]
  - Dizziness [Unknown]
  - Vaginal haemorrhage [Unknown]
  - Tachycardia [Not Recovered/Not Resolved]
  - Pain [Unknown]
  - Thrombosis [Unknown]
  - Vomiting [Unknown]
  - Ill-defined disorder [Unknown]
  - Surgery [Unknown]
  - Impaired gastric emptying [Unknown]
  - Nephrolithiasis [Not Recovered/Not Resolved]
  - Bone pain [Not Recovered/Not Resolved]
  - Nausea [Unknown]
  - Sepsis [Unknown]
  - Dyspnoea [Unknown]
  - Limb injury [Not Recovered/Not Resolved]
  - Device issue [Unknown]
  - Type 2 diabetes mellitus [Not Recovered/Not Resolved]
  - Pyrexia [Unknown]
  - Pulmonary embolism [Unknown]

NARRATIVE: CASE EVENT DATE: 2014
